FAERS Safety Report 15534662 (Version 2)
Quarter: 2025Q3

REPORT INFORMATION
  Report Type: Spontaneous
  Country: US (occurrence: US)
  Receive Date: 20181022
  Receipt Date: 20250721
  Transmission Date: 20251020
  Serious: Yes (Hospitalization, Other)
  Sender: AUROBINDO
  Company Number: US-AUROBINDO-AUR-APL-2018-050813

PATIENT
  Age: 55 Year
  Sex: Male

DRUGS (2)
  1. OXYCODONE [Suspect]
     Active Substance: OXYCODONE
     Indication: Pain
     Route: 065
  2. OXYCODONE [Suspect]
     Active Substance: OXYCODONE

REACTIONS (4)
  - Drug use disorder [Unknown]
  - Drug dependence [Not Recovered/Not Resolved]
  - Overdose [Unknown]
  - Drug withdrawal syndrome [Unknown]
